FAERS Safety Report 11766299 (Version 1)
Quarter: 2015Q4

REPORT INFORMATION
  Report Type: Spontaneous
  Country: CN (occurrence: CN)
  Receive Date: 20151123
  Receipt Date: 20151123
  Transmission Date: 20160304
  Serious: Yes (Other)
  Sender: FDA-Public Use
  Company Number: CN-CIPLA LTD.-2015CN08638

PATIENT

DRUGS (4)
  1. FLUOROURACIL. [Suspect]
     Active Substance: FLUOROURACIL
     Dosage: 2.4 G/M2 CIV 46 H, REPEATED EVERY 2 WEEKS
     Route: 065
  2. IRINOTECAN [Suspect]
     Active Substance: IRINOTECAN
     Indication: RECTAL CANCER RECURRENT
     Dosage: 180 MG/M2 ON D1
     Route: 042
  3. LEUCOVORIN. [Suspect]
     Active Substance: LEUCOVORIN
     Indication: RECTAL CANCER RECURRENT
     Dosage: 400 MG/M2 ON D1
     Route: 042
  4. FLUOROURACIL. [Suspect]
     Active Substance: FLUOROURACIL
     Indication: RECTAL CANCER RECURRENT
     Dosage: 400 MG/M2, REPEATED EVERY 2 WEEKS
     Route: 042

REACTIONS (1)
  - Anorectal disorder [Unknown]
